FAERS Safety Report 7650393-7 (Version None)
Quarter: 2011Q3

REPORT INFORMATION
  Report Type: 
  Country: None (occurrence: None)
  Receive Date: 20110802
  Receipt Date: 20110719
  Transmission Date: 20111222
  Serious: Yes (Hospitalization, Disabling, Other)
  Sender: FDA-Public Use
  Company Number: US-CELGENEUS-163-21880-11062055

PATIENT
  Sex: Female
  Weight: 66.8 kg

DRUGS (31)
  1. REVLIMID [Suspect]
     Indication: MULTIPLE MYELOMA
     Dosage: 25 MILLIGRAM
     Route: 048
     Dates: start: 20110420, end: 20110605
  2. LORAZEPAM [Concomitant]
     Indication: INSOMNIA
     Dosage: 1 MILLIGRAM
     Route: 048
     Dates: end: 20110604
  3. NITROGLYCERIN [Concomitant]
     Indication: CHEST PAIN
     Dosage: .4 MILLIGRAM
     Route: 060
  4. ASPIRIN [Concomitant]
     Dosage: 81 MILLIGRAM
     Route: 048
     Dates: end: 20110604
  5. PREMARIN [Concomitant]
     Dosage: .625 GRAM
     Route: 067
  6. FENOFIBRATE [Concomitant]
     Dosage: 145 MILLIGRAM
     Route: 048
     Dates: end: 20110604
  7. LIDOCAINE HCL VISCOUS [Concomitant]
     Dosage: 2 PERCENT
  8. METOPROLOL SUCCINATE [Concomitant]
     Route: 048
     Dates: end: 20110331
  9. LUTEIN [Concomitant]
     Dosage: 6 MILLIGRAM
     Route: 048
  10. CLOTRIMAZOLE AND BETAMETHASONE DIPROPIONATE [Concomitant]
     Dosage: 1-0.05%
  11. BUTALBITAL ACETAMINOPHEN AND CAFFEINE [Concomitant]
     Indication: PAIN
     Dosage: 50-325-40MG
     Route: 048
  12. MULTIPLE VITAMIN [Concomitant]
     Route: 048
  13. SIMVASTATIN [Concomitant]
     Dosage: 80 MILLIGRAM
     Route: 048
     Dates: end: 20110604
  14. CHOLECALCIFEROL [Concomitant]
     Dosage: 2000 UNIT
     Route: 048
  15. MIRALAX [Concomitant]
     Dosage: 17 GRAM
     Route: 048
  16. HYDROCODONE BITARTRATE AND ACETAMINOPHEN [Concomitant]
     Dosage: 1-2
     Route: 048
     Dates: end: 20110605
  17. SERTRALINE HYDROCHLORIDE [Concomitant]
     Indication: INSOMNIA
     Dosage: 50 MILLIGRAM
     Route: 048
     Dates: end: 20110604
  18. SITAGLIPTIN PHOSPHATE [Concomitant]
     Dosage: 100 MILLIGRAM
     Route: 048
     Dates: end: 20110604
  19. AMLODIPINE [Concomitant]
     Dosage: 10 MILLIGRAM
     Route: 048
     Dates: end: 20110604
  20. HYDROCODONE BITARTRATE AND ACETAMINOPHEN [Concomitant]
     Indication: PAIN
     Dosage: 10-325MG
     Route: 048
     Dates: end: 20110331
  21. OMEPRAZOLE [Concomitant]
     Indication: INSOMNIA
     Dosage: 20 MILLIGRAM
     Route: 048
     Dates: end: 20110604
  22. DIGOXIN [Concomitant]
     Dosage: .125 MILLIGRAM
     Route: 048
     Dates: end: 20110331
  23. ZINC [Concomitant]
     Dosage: 50 MILLIGRAM
     Route: 048
  24. MIRTAZAPINE [Concomitant]
     Dosage: 15 MILLIGRAM
     Route: 048
  25. ALUMINUM + MAGNESIUM HYDROXIDE-SIMETHICONE [Concomitant]
     Dosage: 200-200-20 MG/5ML
     Route: 048
  26. ISOSORBIDE DINITRATE [Concomitant]
     Dosage: 10 MILLIGRAM
     Route: 048
     Dates: end: 20110604
  27. CALCIUM ACETATE [Concomitant]
     Dosage: 500 MILLIGRAM
     Route: 048
  28. IBUPROFEN [Concomitant]
     Dosage: 200 MILLIGRAM
     Route: 048
  29. DOCUSATE SODIUM [Concomitant]
     Dosage: 100 MILLIGRAM
     Route: 048
  30. LATANOPROST [Concomitant]
     Dosage: 1 DROPS
     Route: 047
     Dates: end: 20110604
  31. VALSARTAN [Concomitant]
     Dosage: 160 MILLIGRAM
     Route: 048
     Dates: end: 20110604

REACTIONS (4)
  - THROMBOCYTOPENIA [None]
  - LEUKOPENIA [None]
  - PANCREATIC MASS [None]
  - COLITIS [None]
